FAERS Safety Report 19454996 (Version 1)
Quarter: 2021Q2

REPORT INFORMATION
  Report Type: Spontaneous
  Country: BR (occurrence: BR)
  Receive Date: 20210623
  Receipt Date: 20210623
  Transmission Date: 20210717
  Serious: Yes (Other)
  Sender: FDA-Public Use
  Company Number: BR-PFIZER INC-2021702571

PATIENT
  Sex: Female

DRUGS (2)
  1. ELIFORE [Suspect]
     Active Substance: DESVENLAFAXINE SUCCINATE
  2. TAMOXIFEN CITRATE. [Suspect]
     Active Substance: TAMOXIFEN CITRATE

REACTIONS (1)
  - Breast neoplasm [Unknown]
